FAERS Safety Report 4808830-9 (Version None)
Quarter: 2005Q4

REPORT INFORMATION
  Report Type: 
  Country: None (occurrence: None)
  Receive Date: 20051021
  Receipt Date: 20021113
  Transmission Date: 20060501
  Serious: No
  Sender: FDA-Public Use
  Company Number: DE_021110113

PATIENT
  Age: 32 Year
  Sex: Male

DRUGS (3)
  1. ZYPREXA [Suspect]
     Dosage: 20 MG/DAY
     Dates: start: 20020901
  2. STANGYL (TRIMIPRAMINE MALEATE) [Concomitant]
  3. NEUROCIL (LEVOMEPROMAZINE MALEATE) [Concomitant]

REACTIONS (1)
  - LEUKOPENIA [None]
